FAERS Safety Report 8307369-6 (Version None)
Quarter: 2012Q2

REPORT INFORMATION
  Report Type: 
  Country: None (occurrence: None)
  Receive Date: 20120424
  Receipt Date: 20120412
  Transmission Date: 20120825
  Serious: Yes (Life-Threatening)
  Sender: FDA-Public Use
  Company Number: TR-BRISTOL-MYERS SQUIBB COMPANY-16522377

PATIENT
  Age: 66 Year
  Sex: Female
  Weight: 75 kg

DRUGS (10)
  1. DEXAMETHASONE [Concomitant]
     Dosage: 8MG/2ML
  2. KYTRIL [Concomitant]
     Dosage: 3MG/3ML
  3. RANITIDINE [Concomitant]
     Dosage: 50MG/2ML
  4. METHYLPREDNISOLONE [Concomitant]
     Dosage: AMPULE
     Route: 042
  5. PREDNISONE TAB [Concomitant]
     Dosage: AMPULE 20 MG,AMPULE 3 MG, AMPULE 50 MG.
  6. TAXOL [Suspect]
     Dates: start: 20120309, end: 20120309
  7. VOLUVEN [Concomitant]
     Dosage: 1DF= 500 CC
     Route: 042
  8. ATROPINE [Concomitant]
     Dosage: ATROPIN AMPULE 0.5 MG
     Route: 042
  9. CHLORPHENOXAMINE HCL [Concomitant]
     Dosage: 10MG/ML, 1DF= 1 AMPOULE
  10. CARBOPLATIN [Suspect]
     Route: 042
     Dates: start: 20120309, end: 20120101

REACTIONS (7)
  - URINARY INCONTINENCE [None]
  - SYNCOPE [None]
  - BRADYCARDIA [None]
  - HYPOTENSION [None]
  - LOSS OF CONSCIOUSNESS [None]
  - INFUSION RELATED REACTION [None]
  - HYPOPNOEA [None]
